FAERS Safety Report 16227739 (Version 1)
Quarter: 2019Q2

REPORT INFORMATION
  Report Type: Spontaneous
  Country: US (occurrence: US)
  Receive Date: 20190423
  Receipt Date: 20190423
  Transmission Date: 20190711
  Serious: No
  Sender: FDA-Public Use
  Company Number: US-PFIZER INC-2019172567

PATIENT
  Age: 50 Year

DRUGS (1)
  1. NEURONTIN [Suspect]
     Active Substance: GABAPENTIN
     Indication: NERVE INJURY
     Dosage: UNK

REACTIONS (4)
  - Diplopia [Unknown]
  - Feeling drunk [Unknown]
  - Product use in unapproved indication [Unknown]
  - Somnolence [Unknown]
